FAERS Safety Report 5238352-5 (Version None)
Quarter: 2007Q1

REPORT INFORMATION
  Report Type: 
  Country: None (occurrence: None)
  Receive Date: 20061208
  Receipt Date: 20050228
  Transmission Date: 20070707
  Serious: Yes (Other)
  Sender: FDA-Public Use
  Company Number: 2005UW03223

PATIENT
  Age: 72 Year
  Sex: Male
  Weight: 76.203 kg

DRUGS (5)
  1. CRESTOR [Suspect]
     Indication: BLOOD CHOLESTEROL INCREASED
     Dosage: 10 MG PO
     Route: 048
     Dates: start: 20040801
  2. ASPIRIN [Concomitant]
  3. HYZAAR [Concomitant]
  4. TOPROL-XL [Concomitant]
  5. MESTINON [Concomitant]

REACTIONS (2)
  - MYASTHENIA GRAVIS [None]
  - SINUSITIS [None]
